FAERS Safety Report 5284055-0 (Version None)
Quarter: 2007Q2

REPORT INFORMATION
  Report Type: 
  Country: None (occurrence: None)
  Receive Date: 20070402
  Receipt Date: 20070321
  Transmission Date: 20071010
  Serious: Yes (Other)
  Sender: FDA-Public Use
  Company Number: US-PFIZER INC-2007025251

PATIENT
  Sex: Female
  Weight: 73.9 kg

DRUGS (5)
  1. CHANTIX [Suspect]
     Indication: SMOKING CESSATION THERAPY
  2. NEXIUM [Concomitant]
  3. LEXAPRO [Concomitant]
  4. TRAZODONE HCL [Concomitant]
  5. AMBIEN [Concomitant]

REACTIONS (7)
  - ABDOMINAL PAIN UPPER [None]
  - ABNORMAL DREAMS [None]
  - INCREASED APPETITE [None]
  - MALAISE [None]
  - NAUSEA [None]
  - PAROSMIA [None]
  - WEIGHT INCREASED [None]
